FAERS Safety Report 8726621 (Version 5)
Quarter: 2013Q2

REPORT INFORMATION
  Report Type: Spontaneous
  Country: US (occurrence: US)
  Receive Date: 20120816
  Receipt Date: 20130513
  Transmission Date: 20140414
  Serious: Yes (Hospitalization)
  Sender: FDA-Public Use
  Company Number: US-B.I. PHARMACEUTICALS,INC./RIDGEFIELD-2012-BP-18718BP

PATIENT
  Age: 74 Year
  Sex: Male

DRUGS (17)
  1. PRADAXA [Suspect]
     Indication: ANTICOAGULANT THERAPY
     Dosage: 300 MG
     Route: 048
     Dates: start: 20110928, end: 20111021
  2. PRADAXA [Suspect]
     Indication: ATRIAL FIBRILLATION
  3. ASPIRIN [Concomitant]
     Dosage: 81 MG
     Route: 048
     Dates: start: 1993
  4. AMLODIPINE [Concomitant]
     Dates: start: 1993
  5. INSULIN [Concomitant]
     Dates: start: 1993
  6. SODIUM BICARBONATE [Concomitant]
     Dosage: 1300 MG
     Route: 048
     Dates: start: 1993
  7. ISOSORBIDE MONONITRATE [Concomitant]
     Dosage: 60 MG
     Route: 048
     Dates: start: 1993
  8. HYDRALAZINE HCL [Concomitant]
     Dosage: 200 MG
     Route: 048
     Dates: start: 1993
  9. CLONIDINE HCL [Concomitant]
     Dosage: 0.2 MG
     Route: 048
     Dates: start: 1993
  10. IRON [Concomitant]
  11. LISINOPRIL [Concomitant]
     Dosage: 10 MG
     Route: 048
  12. LIPITOR [Concomitant]
     Dosage: 10 MG
     Route: 048
  13. METOPROLOL TARTRATE [Concomitant]
     Dosage: 75 MG
     Route: 048
  14. NITROGLYCERIN [Concomitant]
     Route: 060
  15. LANTUS [Concomitant]
     Dosage: 10 U
     Route: 058
  16. NOVOLOG [Concomitant]
     Route: 058
  17. LASIX [Concomitant]
     Dosage: 20 MG
     Route: 048

REACTIONS (2)
  - Gastrointestinal haemorrhage [Unknown]
  - Anaemia [Unknown]
